FAERS Safety Report 20096283 (Version 2)
Quarter: 2021Q4

REPORT INFORMATION
  Report Type: Spontaneous
  Country: DE (occurrence: DE)
  Receive Date: 20211122
  Receipt Date: 20211129
  Transmission Date: 20220303
  Serious: Yes (Hospitalization)
  Sender: FDA-Public Use
  Company Number: DE-002147023-NVSC2021DE208344

PATIENT
  Age: 60 Year
  Sex: Female

DRUGS (12)
  1. FINGOLIMOD [Suspect]
     Active Substance: FINGOLIMOD
     Indication: Relapsing-remitting multiple sclerosis
     Dosage: 0.5 MILLIGRAM, QD
     Route: 048
     Dates: start: 20200102
  2. FINGOLIMOD [Suspect]
     Active Substance: FINGOLIMOD
     Dosage: 0.5 MILLIGRAM, QD
     Route: 048
     Dates: start: 20190829
  3. FINGOLIMOD [Suspect]
     Active Substance: FINGOLIMOD
     Dosage: 0.5 MILLIGRAM, QD
     Route: 048
     Dates: start: 20110830
  4. FINGOLIMOD [Suspect]
     Active Substance: FINGOLIMOD
     Dosage: 0.5 MILLIGRAM, QD
     Route: 048
     Dates: start: 20181120
  5. FINGOLIMOD [Suspect]
     Active Substance: FINGOLIMOD
     Dosage: 0.5 MILLIGRAM, QD
     Route: 048
     Dates: start: 20191002
  6. FINGOLIMOD [Suspect]
     Active Substance: FINGOLIMOD
     Dosage: 0.5 MG, QD
     Route: 048
     Dates: start: 20200114
  7. FINGOLIMOD [Suspect]
     Active Substance: FINGOLIMOD
     Dosage: 0.5 MG, QD
     Route: 048
     Dates: start: 20190612
  8. FINGOLIMOD [Suspect]
     Active Substance: FINGOLIMOD
     Dosage: 0.5 MG, QD
     Route: 048
     Dates: start: 20190802
  9. FINGOLIMOD [Suspect]
     Active Substance: FINGOLIMOD
     Dosage: 0.5 MG, QD
     Route: 048
     Dates: start: 20201008
  10. BENSERAZIDE\LEVODOPA [Concomitant]
     Active Substance: BENSERAZIDE\LEVODOPA
     Indication: Restless legs syndrome
     Dosage: UNK (QD)
     Route: 048
     Dates: start: 20180426
  11. VITAMIN D                          /00107901/ [Concomitant]
     Indication: Vitamin D deficiency
     Dosage: 2000 INTERNATIONAL UNIT, QW
     Route: 048
     Dates: start: 2015
  12. SIPONIMOD [Concomitant]
     Active Substance: SIPONIMOD
     Indication: Multiple sclerosis
     Dosage: 2 MILLIGRAM, QD
     Route: 065
     Dates: start: 20201012

REACTIONS (5)
  - COVID-19 [Recovered/Resolved]
  - Headache [Recovered/Resolved]
  - Gait disturbance [Recovered/Resolved]
  - Pain [Recovered/Resolved]
  - Candida infection [Unknown]

NARRATIVE: CASE EVENT DATE: 20210517
